FAERS Safety Report 20264693 (Version 1)
Quarter: 2021Q4

REPORT INFORMATION
  Report Type: Spontaneous
  Country: US (occurrence: None)
  Receive Date: 20211230
  Receipt Date: 20211230
  Transmission Date: 20220303
  Serious: Yes (Hospitalization)
  Sender: FDA-Public Use
  Company Number: None

PATIENT
  Sex: Female

DRUGS (1)
  1. NEULASTA [Suspect]
     Active Substance: PEGFILGRASTIM
     Indication: Bone cancer
     Dosage: FREQUENCY: ONCE EVERY 21 D?
     Route: 058
     Dates: start: 202112

REACTIONS (2)
  - Neutropenia [None]
  - Mucosal inflammation [None]
